FAERS Safety Report 5243862-0 (Version None)
Quarter: 2007Q1

REPORT INFORMATION
  Report Type: 
  Country: None (occurrence: None)
  Receive Date: 20070220
  Receipt Date: 20070220
  Transmission Date: 20070707
  Serious: Yes (Other)
  Sender: FDA-Public Use
  Company Number: None

PATIENT
  Age: 40 Year
  Sex: Female
  Weight: 68.0396 kg

DRUGS (3)
  1. KLONOPIN [Suspect]
     Indication: ANXIETY
     Dosage: 1.0 MG ^AS NEEDED BASIS^
     Dates: start: 20060201, end: 20070205
  2. KLONOPIN [Suspect]
     Indication: PANIC ATTACK
     Dosage: 1.0 MG ^AS NEEDED BASIS^
     Dates: start: 20060201, end: 20070205
  3. KLONOPIN [Suspect]
     Indication: POST-TRAUMATIC STRESS DISORDER
     Dosage: 1.0 MG ^AS NEEDED BASIS^
     Dates: start: 20060201, end: 20070205

REACTIONS (2)
  - DRUG WITHDRAWAL SYNDROME [None]
  - SPEECH DISORDER [None]
